FAERS Safety Report 5957119-3 (Version None)
Quarter: 2008Q4

REPORT INFORMATION
  Report Type: 
  Country: None (occurrence: None)
  Receive Date: 20081106
  Receipt Date: 20080618
  Transmission Date: 20090506
  Serious: Yes (Hospitalization, Other)
  Sender: FDA-Public Use
  Company Number: US200806004869

PATIENT
  Age: 17 Year
  Sex: Male

DRUGS (1)
  1. PROZAC [Suspect]
     Indication: SOCIAL PHOBIA
     Dosage: 20 MG
     Dates: start: 20050101

REACTIONS (2)
  - ALCOHOL ABUSE [None]
  - PANCREATITIS [None]
